FAERS Safety Report 4695750-6 (Version None)
Quarter: 2005Q2

REPORT INFORMATION
  Report Type: 
  Country: None (occurrence: None)
  Receive Date: 20050621
  Receipt Date: 20050425
  Transmission Date: 20051028
  Serious: Yes (Other)
  Sender: FDA-Public Use
  Company Number: GB-BRISTOL-MYERS SQUIBB COMPANY-12945184

PATIENT
  Age: 27 Year
  Sex: Male
  Weight: 73 kg

DRUGS (5)
  1. ABILIFY [Suspect]
     Indication: PSYCHOTIC DISORDER
     Dosage: INITIATED AT 10 MG/DAY IN NOV-2004, INCREASED TO 15 MG/DAY ON 12-JAN-2005
     Route: 048
     Dates: start: 20041101, end: 20050531
  2. SERTRALINE HCL [Concomitant]
     Indication: DEPRESSION
     Route: 048
     Dates: start: 20041018
  3. LORAZEPAM [Concomitant]
  4. PARACETAMOL [Concomitant]
  5. CLOTRIMAZOLE [Concomitant]
     Indication: TINEA PEDIS
     Route: 061
     Dates: start: 20050401

REACTIONS (5)
  - BLOOD TRIGLYCERIDES INCREASED [None]
  - HAEMOGLOBIN INCREASED [None]
  - RED BLOOD CELL COUNT INCREASED [None]
  - SINUS TACHYCARDIA [None]
  - VENTRICULAR EXTRASYSTOLES [None]
